FAERS Safety Report 7788515-X (Version None)
Quarter: 2011Q3

REPORT INFORMATION
  Report Type: 
  Country: None (occurrence: None)
  Receive Date: 20110930
  Receipt Date: 20110927
  Transmission Date: 20111222
  Serious: Yes (Death)
  Sender: FDA-Public Use
  Company Number: PHEH2011US05259

PATIENT
  Sex: Male

DRUGS (4)
  1. TRILEPTAL [Suspect]
     Indication: CONVULSION
  2. LORTAB [Suspect]
     Indication: PAIN IN EXTREMITY
  3. MORPHINE [Suspect]
     Route: 048
  4. NEURONTIN [Suspect]
     Indication: PAIN IN EXTREMITY

REACTIONS (2)
  - GUN SHOT WOUND [None]
  - COMPLETED SUICIDE [None]
